FAERS Safety Report 6017919-0 (Version None)
Quarter: 2008Q4

REPORT INFORMATION
  Report Type: 
  Country: None (occurrence: None)
  Receive Date: 20081223
  Receipt Date: 20081215
  Transmission Date: 20090506
  Serious: Yes (Hospitalization, Other)
  Sender: FDA-Public Use
  Company Number: FR-ABBOTT-08P-056-0493151-00

PATIENT
  Sex: Male

DRUGS (14)
  1. CLARITHROMYCIN [Suspect]
     Indication: GASTRIC ULCER
     Dates: start: 20081023, end: 20081104
  2. CLARITHROMYCIN [Interacting]
     Indication: HELICOBACTER INFECTION
  3. TIEMONIUM+OPIUM+COLCHICIN [Interacting]
     Indication: ARTHRALGIA
     Dates: start: 20081104
  4. WARFARIN SODIUM [Interacting]
     Indication: DRUG USE FOR UNKNOWN INDICATION
     Dates: end: 20081104
  5. BISOPROLOL FUMARATE [Concomitant]
     Indication: DRUG USE FOR UNKNOWN INDICATION
     Route: 048
  6. FUROSEMIDE [Concomitant]
     Indication: DRUG USE FOR UNKNOWN INDICATION
     Route: 048
  7. IRBESARTAN [Concomitant]
     Indication: DRUG USE FOR UNKNOWN INDICATION
     Route: 048
  8. ADRENALINE [Concomitant]
     Indication: GASTROINTESTINAL HAEMORRHAGE
  9. DICLOFENAC SODIUM [Concomitant]
     Indication: ARTHRALGIA
     Route: 059
  10. PARACETAMOL+DEXTROPROXYPHENE [Concomitant]
     Indication: ARTHRALGIA
  11. PANTOPRAZOLE SODIUM [Concomitant]
     Indication: DRUG USE FOR UNKNOWN INDICATION
  12. ISOXAN [Concomitant]
     Indication: DRUG USE FOR UNKNOWN INDICATION
  13. CHONDROITINE SULFATE SODIC [Concomitant]
     Indication: DRUG USE FOR UNKNOWN INDICATION
  14. SACCHAROMYCES BOULARDII [Concomitant]
     Indication: DRUG USE FOR UNKNOWN INDICATION

REACTIONS (14)
  - ALOPECIA [None]
  - ASTHENIA [None]
  - BONE MARROW FAILURE [None]
  - DEHYDRATION [None]
  - DIARRHOEA [None]
  - DYSPNOEA EXERTIONAL [None]
  - GENERAL PHYSICAL HEALTH DETERIORATION [None]
  - HAEMODYNAMIC INSTABILITY [None]
  - HEPATITIS [None]
  - INTERNATIONAL NORMALISED RATIO INCREASED [None]
  - PALLOR [None]
  - PANCYTOPENIA [None]
  - RENAL FAILURE ACUTE [None]
  - WEIGHT DECREASED [None]
